FAERS Safety Report 4617661-4 (Version None)
Quarter: 2005Q1

REPORT INFORMATION
  Report Type: 
  Country: None (occurrence: None)
  Receive Date: 20050322
  Receipt Date: 20050314
  Transmission Date: 20050727
  Serious: Yes (Congenital Anomaly)
  Sender: FDA-Public Use
  Company Number: 2005GB00519

PATIENT
  Age: 31 Year
  Sex: Female

DRUGS (4)
  1. ZESTRIL [Suspect]
     Indication: ESSENTIAL HYPERTENSION
     Dosage: 5 MG DAILY PO
     Route: 048
     Dates: start: 20030101, end: 20040714
  2. ERYTHROCIN [Concomitant]
  3. DEXAMETH [Concomitant]
  4. ALDOMET [Concomitant]

REACTIONS (3)
  - DRUG EXPOSURE DURING PREGNANCY [None]
  - PREGNANCY [None]
  - STILLBIRTH [None]
